FAERS Safety Report 7430115-5 (Version None)
Quarter: 2011Q2

REPORT INFORMATION
  Report Type: 
  Country: None (occurrence: None)
  Receive Date: 20110421
  Receipt Date: 20100512
  Transmission Date: 20111010
  Serious: No
  Sender: FDA-Public Use
  Company Number: US-ASTRAZENECA-2010SE13353

PATIENT
  Age: 61 Year
  Sex: Female
  Weight: 78 kg

DRUGS (9)
  1. CLONOPIN [Concomitant]
     Indication: ANXIETY
  2. SERZONE [Concomitant]
     Indication: ANXIETY
  3. SERZONE [Concomitant]
  4. TOPROL-XL [Suspect]
     Indication: VENTRICULAR EXTRASYSTOLES
     Route: 048
     Dates: start: 20080101
  5. ALLEGRA [Concomitant]
  6. KLONOPIN [Concomitant]
  7. ZANTAC [Concomitant]
  8. TOPROL-XL [Suspect]
     Route: 048
     Dates: start: 20080101
  9. LEVOXYL [Concomitant]

REACTIONS (7)
  - WEIGHT INCREASED [None]
  - DRUG INTOLERANCE [None]
  - FATIGUE [None]
  - HAEMATOCHEZIA [None]
  - ABDOMINAL PAIN [None]
  - RECTAL HAEMORRHAGE [None]
  - HAEMORRHOIDS [None]
